FAERS Safety Report 8825713 (Version 1)
Quarter: 2012Q4

REPORT INFORMATION
  Report Type: 
  Country: DE (occurrence: DE)
  Receive Date: 20121004
  Receipt Date: 20121004
  Transmission Date: 20130627
  Serious: Yes (Hospitalization)
  Sender: FDA-Public Use
  Company Number: DE-PFIZER INC-2012240317

PATIENT
  Age: 52 Year
  Sex: Male
  Weight: 84.5 kg

DRUGS (17)
  1. SOMATROPIN [Suspect]
     Indication: HYPOPITUITARISM
     Dosage: 0.4 mg, 1x/day, 7 injections/week
     Route: 058
     Dates: start: 20050927
  2. MENOGON [Concomitant]
     Indication: BLOOD LUTEINISING HORMONE DECREASED
     Dosage: UNK
     Dates: start: 19941001
  3. MENOGON [Concomitant]
     Indication: BLOOD FOLLICLE STIMULATING HORMONE DECREASED
  4. MENOGON [Concomitant]
     Indication: HYPOGONADISM MALE
  5. FOLLICLE STIMULATING HORMONE [Concomitant]
     Indication: BLOOD LUTEINISING HORMONE DECREASED
     Dosage: UNK
     Dates: start: 19941001
  6. FOLLICLE STIMULATING HORMONE [Concomitant]
     Indication: BLOOD FOLLICLE STIMULATING HORMONE DECREASED
  7. FOLLICLE STIMULATING HORMONE [Concomitant]
     Indication: HYPOGONADISM MALE
  8. PRIMOGONYL [Concomitant]
     Indication: BLOOD LUTEINISING HORMONE DECREASED
     Dosage: UNK
     Dates: start: 19941001
  9. PRIMOGONYL [Concomitant]
     Indication: BLOOD FOLLICLE STIMULATING HORMONE DECREASED
  10. PRIMOGONYL [Concomitant]
     Indication: HYPOGONADISM MALE
  11. DESMOPRESSIN [Concomitant]
     Indication: BLOOD ANTIDIURETIC HORMONE DECREASED
     Dosage: UNK
     Dates: start: 19870101
  12. LEVOTHYROXINE [Concomitant]
     Indication: BLOOD THYROID STIMULATING HORMONE DECREASED
     Dosage: UNK
     Dates: start: 20050927
  13. LEVOTHYROXINE [Concomitant]
     Indication: PRIMARY HYPOTHYROIDISM
  14. TESTOSTERONE UNDECANOATE [Concomitant]
     Indication: BLOOD LUTEINISING HORMONE DECREASED
     Dosage: UNK
     Dates: start: 20060202
  15. TESTOSTERONE UNDECANOATE [Concomitant]
     Indication: BLOOD FOLLICLE STIMULATING HORMONE DECREASED
  16. TESTOSTERONE UNDECANOATE [Concomitant]
     Indication: HYPOGONADISM MALE
  17. LISINOPRIL [Concomitant]
     Indication: HYPERTENSION
     Dosage: UNK
     Dates: start: 20080204

REACTIONS (1)
  - Limb operation [Unknown]
